FAERS Safety Report 9888944 (Version 3)
Quarter: 2014Q1

REPORT INFORMATION
  Report Type: Report from Study
  Country: JP (occurrence: JP)
  Receive Date: 20140211
  Receipt Date: 20140320
  Transmission Date: 20141002
  Serious: Yes (Hospitalization)
  Sender: FDA-Public Use
  Company Number: JP-GLAXOSMITHKLINE-B0967310A

PATIENT
  Sex: Male
  Weight: 43 kg

DRUGS (2)
  1. VOTRIENT 200MG [Suspect]
     Indication: EXTRASKELETAL OSTEOSARCOMA
     Dosage: 800MG PER DAY
     Route: 048
     Dates: start: 20130109, end: 20130219
  2. FAMOTIDINE [Concomitant]
     Indication: VOMITING
     Route: 065

REACTIONS (1)
  - Pneumonia [Unknown]
